FAERS Safety Report 16363119 (Version 2)
Quarter: 2019Q3

REPORT INFORMATION
  Report Type: Spontaneous
  Country: US (occurrence: US)
  Receive Date: 20190528
  Receipt Date: 20190923
  Transmission Date: 20191004
  Serious: Yes (Death, Life-Threatening, Hospitalization, Other)
  Sender: FDA-Public Use
  Company Number: US-BAYER-2019-100901

PATIENT
  Age: 54 Year
  Sex: Male

DRUGS (3)
  1. HYDROXYZINE [Concomitant]
     Active Substance: HYDROXYZINE HYDROCHLORIDE
  2. METOPROLOL. [Concomitant]
     Active Substance: METOPROLOL
  3. PARACETAMOL [Suspect]
     Active Substance: ACETAMINOPHEN
     Dosage: MASSIVE ACETAMINOPHEN INGESTION

REACTIONS (6)
  - Overdose [Fatal]
  - Hepatotoxicity [Not Recovered/Not Resolved]
  - Hypotension [Unknown]
  - Methaemoglobinaemia [Recovering/Resolving]
  - Pulseless electrical activity [Fatal]
  - Coagulopathy [Unknown]
